FAERS Safety Report 4993592-5 (Version None)
Quarter: 2006Q2

REPORT INFORMATION
  Report Type: 
  Country: None (occurrence: None)
  Receive Date: 20060505
  Receipt Date: 20051221
  Transmission Date: 20061013
  Serious: Yes (Other)
  Sender: FDA-Public Use
  Company Number: PHEH2005US13810

PATIENT
  Age: 39 Year
  Sex: Female
  Weight: 115.19 kg

DRUGS (6)
  1. FOLIC ACID [Concomitant]
     Dosage: 1 TABLET DAILY
     Route: 048
     Dates: start: 20020205
  2. RITALIN [Suspect]
     Indication: SOMNOLENCE
     Dosage: 20 MG 2 BID
     Dates: start: 20060310
  3. RITALIN [Suspect]
     Dosage: 80 MG, QD
     Route: 048
     Dates: start: 19970101, end: 20051101
  4. ADDERALL 10 [Suspect]
     Indication: SOMNOLENCE
     Dosage: 40 MG, QD
     Route: 048
     Dates: start: 19980717
  5. KLONOPIN [Concomitant]
     Indication: SLEEP DISORDER
     Dosage: 2 MG  2 HS
     Route: 048
     Dates: start: 20001112
  6. REMERON [Concomitant]
     Indication: SLEEP DISORDER
     Dosage: 15 MG 2 HS
     Route: 048
     Dates: start: 20031019

REACTIONS (7)
  - CARTILAGE INJURY [None]
  - COMPLEX REGIONAL PAIN SYNDROME [None]
  - CONDITION AGGRAVATED [None]
  - CONVULSION [None]
  - KNEE OPERATION [None]
  - NARCOLEPSY [None]
  - NERVE INJURY [None]
